FAERS Safety Report 12237035 (Version 1)
Quarter: 2016Q2

REPORT INFORMATION
  Report Type: Other
  Country: UA (occurrence: UA)
  Receive Date: 20160405
  Receipt Date: 20160405
  Transmission Date: 20160815
  Serious: Yes (Hospitalization)
  Sender: FDA-Public Use
  Company Number: UA-CIPLA LTD.-2016UA03222

PATIENT

DRUGS (10)
  1. RIFAMPICINUM [Suspect]
     Active Substance: RIFAMPIN
     Dosage: UNK
     Route: 065
  2. LAMIVUDINE/ZIDOVUDINE [Suspect]
     Active Substance: LAMIVUDINE\ZIDOVUDINE
     Indication: HIV INFECTION
     Dosage: 150 MG/300 MG, BID
     Route: 048
     Dates: start: 20090806
  3. PIRAZINAMIDUM [Suspect]
     Active Substance: PYRAZINAMIDE
     Dosage: UNK
     Route: 065
  4. STREPTOMYCIN [Suspect]
     Active Substance: STREPTOMYCIN\STREPTOMYCIN SULFATE
     Dosage: UNK
     Route: 065
  5. BI-SEPT [Suspect]
     Active Substance: SULFAMETHOXAZOLE\TRIMETHOPRIM
     Dosage: UNK
     Route: 065
  6. EFAVIRENZ [Suspect]
     Active Substance: EFAVIRENZ
     Dosage: UNK
     Route: 065
  7. NYSTATINUM [Suspect]
     Active Substance: NYSTATIN
     Dosage: UNK
     Route: 065
  8. ETHAMBUTOLUM [Suspect]
     Active Substance: ETHAMBUTOL HYDROCHLORIDE
     Dosage: UNK
     Route: 065
  9. LAMIVUDINE/ZIDOVUDINE [Suspect]
     Active Substance: LAMIVUDINE\ZIDOVUDINE
     Indication: MYCOBACTERIAL INFECTION
  10. ISONIAZIDUM [Suspect]
     Active Substance: ISONIAZID
     Dosage: UNK
     Route: 065

REACTIONS (6)
  - Tachycardia [Recovered/Resolved]
  - Nausea [Recovered/Resolved]
  - Asthenia [Recovered/Resolved]
  - Dizziness [Recovered/Resolved]
  - Anaemia [Recovered/Resolved]
  - Decreased appetite [Recovered/Resolved]

NARRATIVE: CASE EVENT DATE: 20090806
